FAERS Safety Report 14430602 (Version 1)
Quarter: 2018Q1

REPORT INFORMATION
  Report Type: Spontaneous
  Country: GB (occurrence: GB)
  Receive Date: 20180123
  Receipt Date: 20180123
  Transmission Date: 20180509
  Serious: Yes (Hospitalization, Disabling)
  Sender: FDA-Public Use
  Company Number: None

PATIENT
  Age: 29 Year
  Sex: Female
  Weight: 76 kg

DRUGS (3)
  1. ELOCON [Suspect]
     Active Substance: MOMETASONE FUROATE
     Indication: ECZEMA
     Route: 061
  2. ANADIN [Concomitant]
     Active Substance: IBUPROFEN
  3. HIDROCORTISONE [Suspect]
     Active Substance: HYDROCORTISONE

REACTIONS (11)
  - Burning sensation [None]
  - Pruritus [None]
  - Depression [None]
  - Insomnia [None]
  - Skin exfoliation [None]
  - Dry skin [None]
  - Drug effect decreased [None]
  - Skin atrophy [None]
  - Skin swelling [None]
  - Eczema [None]
  - Secretion discharge [None]

NARRATIVE: CASE EVENT DATE: 20100103
